FAERS Safety Report 21853780 (Version 1)
Quarter: 2023Q1

REPORT INFORMATION
  Report Type: Spontaneous
  Country: US (occurrence: US)
  Receive Date: 20230112
  Receipt Date: 20230112
  Transmission Date: 20230417
  Serious: Yes (Death, Hospitalization, Other)
  Sender: FDA-Public Use
  Company Number: US-PFIZER INC-202300011668

PATIENT
  Age: 80 Year
  Sex: Male
  Weight: 90.72 kg

DRUGS (2)
  1. VYNDAMAX [Suspect]
     Active Substance: TAFAMIDIS
     Indication: Pericardial effusion
     Dosage: 61 MG, 1X/DAY (IN THE MORNING )
     Route: 048
     Dates: start: 2021, end: 20221221
  2. MIDRONE [Concomitant]
     Indication: Cardiac disorder
     Dosage: UNK [IV PICC LINE FOR THE HEART/CHANGED THE IV BAGS TWICE PER WEEK]
     Route: 042

REACTIONS (6)
  - Death [Fatal]
  - Hypotension [Unknown]
  - Internal haemorrhage [Unknown]
  - Sepsis [Unknown]
  - Haematoma [Unknown]
  - Weight decreased [Unknown]

NARRATIVE: CASE EVENT DATE: 20221201
